FAERS Safety Report 14330911 (Version 1)
Quarter: 2017Q4

REPORT INFORMATION
  Report Type: Spontaneous
  Country: NO (occurrence: NO)
  Receive Date: 20171228
  Receipt Date: 20171228
  Transmission Date: 20180321
  Serious: Yes (Hospitalization)
  Sender: FDA-Public Use
  Company Number: NO-TEVA-2017-NO-834996

PATIENT
  Sex: Male
  Weight: 76 kg

DRUGS (4)
  1. TRUXAL [Suspect]
     Active Substance: CHLORPROTHIXENE
     Indication: ANXIETY DISORDER
     Dates: start: 19911005, end: 19911023
  2. TRAMADOL. [Suspect]
     Active Substance: TRAMADOL
  3. LYRICA [Suspect]
     Active Substance: PREGABALIN
     Indication: ANXIETY
     Dates: start: 20120321, end: 20120710
  4. BUSPIRONE [Suspect]
     Active Substance: BUSPIRONE HYDROCHLORIDE
     Indication: ANXIETY
     Dates: start: 20160122, end: 20160305

REACTIONS (2)
  - Injury [Recovered/Resolved with Sequelae]
  - Apathy [Recovered/Resolved with Sequelae]

NARRATIVE: CASE EVENT DATE: 20110306
